FAERS Safety Report 10185075 (Version 2)
Quarter: 2014Q2

REPORT INFORMATION
  Report Type: Report from Study
  Country: PL (occurrence: PL)
  Receive Date: 20140521
  Receipt Date: 20140527
  Transmission Date: 20141212
  Serious: Yes (Hospitalization)
  Sender: FDA-Public Use
  Company Number: PL-B.I. PHARMACEUTICALS,INC./RIDGEFIELD-2014-BI-21359BI

PATIENT
  Age: 57 Year
  Sex: Female
  Weight: 57 kg

DRUGS (1)
  1. BIBW 2992 [Suspect]
     Indication: LUNG NEOPLASM MALIGNANT
     Dosage: 40 MG
     Route: 048
     Dates: start: 20140329, end: 20140510

REACTIONS (3)
  - Dysphagia [Not Recovered/Not Resolved]
  - Stomatitis [Unknown]
  - Atelectasis [Unknown]
